FAERS Safety Report 7529088-6 (Version None)
Quarter: 2011Q2

REPORT INFORMATION
  Report Type: 
  Country: None (occurrence: None)
  Receive Date: 20110607
  Receipt Date: 20110527
  Transmission Date: 20111010
  Serious: Yes (Other)
  Sender: FDA-Public Use
  Company Number: MA-BAXTER-2011BH018067

PATIENT
  Age: 46 Year
  Sex: Female

DRUGS (2)
  1. CYCLOPHOSPHAMIDE [Suspect]
     Indication: POLYARTERITIS NODOSA
     Route: 042
  2. PREDNISONE [Concomitant]
     Indication: POLYARTERITIS NODOSA
     Route: 048

REACTIONS (4)
  - GRAND MAL CONVULSION [None]
  - POSTICTAL STATE [None]
  - HYPONATRAEMIA [None]
  - HEADACHE [None]
